FAERS Safety Report 6454799-3 (Version None)
Quarter: 2009Q4

REPORT INFORMATION
  Report Type: 
  Country: None (occurrence: None)
  Receive Date: 20091124
  Receipt Date: 20091112
  Transmission Date: 20100525
  Serious: Yes (Hospitalization)
  Sender: FDA-Public Use
  Company Number: CZ-GENENTECH-276875

PATIENT
  Sex: Male

DRUGS (5)
  1. BEVACIZUMAB [Suspect]
     Indication: RENAL CANCER
     Dosage: 750 MG, ^Q15D^
     Route: 042
  2. TORISEL [Suspect]
     Indication: RENAL CANCER
     Dosage: 25 MG, 1/WEEK
     Route: 042
     Dates: start: 20081030
  3. SEROPRAM [Concomitant]
     Indication: DRUG USE FOR UNKNOWN INDICATION
     Dosage: UNK
  4. DICLOFENAC [Concomitant]
     Indication: DRUG USE FOR UNKNOWN INDICATION
  5. POLYVIDONE [Concomitant]
     Indication: PAIN
     Dosage: UNK
     Dates: start: 20090126

REACTIONS (2)
  - ANAEMIA [None]
  - DIARRHOEA [None]
